FAERS Safety Report 7267561-9 (Version None)
Quarter: 2011Q1

REPORT INFORMATION
  Report Type: 
  Country: None (occurrence: None)
  Receive Date: 20110201
  Receipt Date: 20110124
  Transmission Date: 20110831
  Serious: Yes (Hospitalization, Other)
  Sender: FDA-Public Use
  Company Number: IE-ELI_LILLY_AND_COMPANY-IE201012003926

PATIENT
  Sex: Male

DRUGS (11)
  1. LIPID MODIFYING AGENTS [Concomitant]
  2. WARFARIN [Concomitant]
  3. GLICLAZIDE [Concomitant]
  4. DIURETICS [Concomitant]
  5. BYETTA [Suspect]
     Indication: TYPE 2 DIABETES MELLITUS
     Dosage: 5 UG, 2/D
     Dates: start: 20091117, end: 20091217
  6. BYETTA [Suspect]
     Dosage: 10 UG, 2/D
     Route: 058
     Dates: start: 20091217, end: 20101206
  7. ASPIRIN [Concomitant]
  8. ACE INHIBITORS [Concomitant]
  9. BISOPROLOL [Concomitant]
  10. DIGOXIN [Concomitant]
  11. HYTRIN [Concomitant]

REACTIONS (2)
  - BILE DUCT STONE [None]
  - PANCREATITIS [None]
